FAERS Safety Report 7087113-3 (Version None)
Quarter: 2010Q4

REPORT INFORMATION
  Report Type: 
  Country: None (occurrence: None)
  Receive Date: 20101106
  Receipt Date: 20101026
  Transmission Date: 20110411
  Serious: No
  Sender: FDA-Public Use
  Company Number: US-WYE-H18386810

PATIENT
  Sex: Female
  Weight: 81.72 kg

DRUGS (3)
  1. PRISTIQ [Suspect]
     Indication: BIPOLAR DISORDER
     Route: 048
     Dates: start: 20100901, end: 20101015
  2. PRISTIQ [Suspect]
     Indication: MAJOR DEPRESSION
     Route: 048
     Dates: start: 20101018
  3. ADVAIR DISKUS 100/50 [Concomitant]

REACTIONS (1)
  - FEELING ABNORMAL [None]
